FAERS Safety Report 6928791-6 (Version None)
Quarter: 2010Q3

REPORT INFORMATION
  Report Type: 
  Country: None (occurrence: None)
  Receive Date: 20100817
  Receipt Date: 20100812
  Transmission Date: 20110219
  Serious: Yes (Other)
  Sender: FDA-Public Use
  Company Number: US-BRISTOL-MYERS SQUIBB COMPANY-15238033

PATIENT
  Age: 80 Year
  Sex: Male

DRUGS (10)
  1. ERBITUX [Suspect]
  2. LISINOPRIL [Suspect]
  3. PRAVASTATIN [Suspect]
  4. REGLAN [Concomitant]
  5. KEFLEX [Concomitant]
  6. RANITIDINE [Concomitant]
  7. LEVOTHYROXINE SODIUM [Concomitant]
  8. DEXAMETHASONE [Concomitant]
  9. BENADRYL [Concomitant]
  10. NIACIN [Concomitant]

REACTIONS (5)
  - ACNE [None]
  - DIARRHOEA [None]
  - DIZZINESS [None]
  - HICCUPS [None]
  - HYPOTENSION [None]
